FAERS Safety Report 9410880 (Version 2)
Quarter: 2013Q3

REPORT INFORMATION
  Report Type: Spontaneous
  Country: TR (occurrence: TR)
  Receive Date: 20130719
  Receipt Date: 20130822
  Transmission Date: 20140515
  Serious: Yes (Other)
  Sender: FDA-Public Use
  Company Number: CHNY2013TR001508

PATIENT
  Age: 8 Year
  Sex: Female

DRUGS (2)
  1. OTRIVIN PEDIATRIC [Suspect]
     Indication: NASAL CONGESTION
     Dosage: UNK, UNK
     Dates: start: 2011, end: 2011
  2. DEPAKIN [Concomitant]
     Dosage: UNK, UNK

REACTIONS (11)
  - Sinusitis [Not Recovered/Not Resolved]
  - Nasal mucosal disorder [Recovered/Resolved]
  - Convulsion [Recovered/Resolved]
  - VIIth nerve paralysis [Recovered/Resolved]
  - Speech disorder [Recovered/Resolved]
  - Dyspnoea [Recovered/Resolved]
  - Skin wrinkling [Recovered/Resolved]
  - Scar [Recovered/Resolved]
  - Muscle spasticity [Recovered/Resolved]
  - Lip disorder [Recovered/Resolved]
  - Dry skin [Recovered/Resolved]
